FAERS Safety Report 18799499 (Version 1)
Quarter: 2021Q1

REPORT INFORMATION
  Report Type: Spontaneous
  Country: CN (occurrence: CN)
  Receive Date: 20210128
  Receipt Date: 20210128
  Transmission Date: 20210419
  Serious: Yes (Life-Threatening, Other)
  Sender: FDA-Public Use
  Company Number: CN-SLATE RUN PHARMACEUTICALS-21CN000388

PATIENT

DRUGS (6)
  1. ANESTHETICS, GENERAL [Concomitant]
     Active Substance: UNSPECIFIED INGREDIENT
     Indication: SPINAL DECOMPRESSION
     Route: 065
  2. VANCOMYCIN HYDROCHLORIDE USP [Suspect]
     Active Substance: VANCOMYCIN HYDROCHLORIDE
     Indication: INFECTION PROPHYLAXIS
     Dosage: 3 GRAM, SINGLE
     Route: 061
  3. OTHER THERAPEUTIC PRODUCTS [Suspect]
     Active Substance: UNSPECIFIED INGREDIENT
     Indication: CIRCULATORY COLLAPSE
     Dosage: 1000 MILLILITRE
     Route: 042
  4. ANESTHETICS, GENERAL [Concomitant]
     Active Substance: UNSPECIFIED INGREDIENT
     Indication: INTERNAL FIXATION OF SPINE
  5. OTHER THERAPEUTIC PRODUCTS [Suspect]
     Active Substance: UNSPECIFIED INGREDIENT
     Indication: CIRCULATORY COLLAPSE
     Dosage: 4400 MILLILITRE
     Route: 042
  6. ANESTHETICS, GENERAL [Concomitant]
     Active Substance: UNSPECIFIED INGREDIENT
     Indication: SPINAL FUSION SURGERY

REACTIONS (8)
  - Circulatory collapse [Recovered/Resolved]
  - Coma [Unknown]
  - Hypoxic-ischaemic encephalopathy [Unknown]
  - Haemoglobin decreased [Unknown]
  - Ventricular fibrillation [Recovered/Resolved]
  - Cardiac arrest [Recovered/Resolved]
  - Off label use [Unknown]
  - Anaphylactic reaction [Unknown]
